FAERS Safety Report 5236786-6 (Version None)
Quarter: 2007Q1

REPORT INFORMATION
  Report Type: 
  Country: None (occurrence: None)
  Receive Date: 20061208
  Receipt Date: 20050729
  Transmission Date: 20070707
  Serious: Yes (Other)
  Sender: FDA-Public Use
  Company Number: 2005UW11290

PATIENT
  Age: 63 Year
  Sex: Female
  Weight: 60.327 kg

DRUGS (3)
  1. TOPROL-XL [Suspect]
     Dosage: 50 MG PO
     Route: 048
  2. CRESTOR [Suspect]
     Dosage: 10 MG QD PO
     Route: 048
  3. CALCIUM [Concomitant]

REACTIONS (1)
  - GAMMA-GLUTAMYLTRANSFERASE INCREASED [None]
